FAERS Safety Report 25123488 (Version 1)
Quarter: 2025Q1

REPORT INFORMATION
  Report Type: Report from Study
  Country: US (occurrence: US)
  Receive Date: 20250326
  Receipt Date: 20250326
  Transmission Date: 20250408
  Serious: Yes (Hospitalization, Other)
  Sender: BAYER HEALTHCARE PHARMACEUTICALS INC.
  Company Number: US-BAYER-2025A032619

PATIENT
  Sex: Male
  Weight: 90.703 kg

DRUGS (28)
  1. ADEMPAS [Suspect]
     Active Substance: RIOCIGUAT
     Indication: Pulmonary hypertension
     Dates: start: 20240910
  2. ADEMPAS [Suspect]
     Active Substance: RIOCIGUAT
     Indication: Pulmonary arterial hypertension
     Dosage: 1 MG, TID
     Route: 048
     Dates: start: 20211209
  3. FERROUS SULFATE [Concomitant]
     Active Substance: FERROUS SULFATE
  4. AZITHROMYCIN [Concomitant]
     Active Substance: AZITHROMYCIN
  5. RANOLAZINE [Concomitant]
     Active Substance: RANOLAZINE
  6. LEVETIRACETAM [Concomitant]
     Active Substance: LEVETIRACETAM
  7. BUDESONIDE [Concomitant]
     Active Substance: BUDESONIDE
  8. TORSEMIDE [Concomitant]
     Active Substance: TORSEMIDE
  9. AMBRISENTAN [Concomitant]
     Active Substance: AMBRISENTAN
  10. SYMBICORT [Concomitant]
     Active Substance: BUDESONIDE\FORMOTEROL FUMARATE DIHYDRATE
  11. ACETAMINOPHEN [Concomitant]
     Active Substance: ACETAMINOPHEN
  12. OMEPRAZOLE [Concomitant]
     Active Substance: OMEPRAZOLE
  13. OXYGEN [Concomitant]
     Active Substance: OXYGEN
  14. ATORVASTATIN CALCIUM [Concomitant]
     Active Substance: ATORVASTATIN CALCIUM
  15. WINREVAIR [Concomitant]
     Active Substance: SOTATERCEPT-CSRK
  16. SPIRIVA RESPIMAT [Concomitant]
     Active Substance: TIOTROPIUM BROMIDE
  17. KEPPRA [Concomitant]
     Active Substance: LEVETIRACETAM
  18. OXCARBAZEPINE [Concomitant]
     Active Substance: OXCARBAZEPINE
  19. PULMICORT TURBUHALER [Concomitant]
     Active Substance: BUDESONIDE
  20. ELIQUIS [Concomitant]
     Active Substance: APIXABAN
  21. GABAPENTIN [Concomitant]
     Active Substance: GABAPENTIN
  22. ARFORMOTEROL TARTRATE [Concomitant]
     Active Substance: ARFORMOTEROL TARTRATE
  23. ALBUTEROL SULFATE [Concomitant]
     Active Substance: ALBUTEROL SULFATE
  24. TAMSULOSIN HYDROCHLORIDE [Concomitant]
     Active Substance: TAMSULOSIN HYDROCHLORIDE
  25. ALBUTEROL\IPRATROPIUM [Concomitant]
     Active Substance: ALBUTEROL\IPRATROPIUM
  26. MIDODRINE HYDROCHLORIDE [Concomitant]
     Active Substance: MIDODRINE HYDROCHLORIDE
  27. IBUPROFEN [Concomitant]
     Active Substance: IBUPROFEN
  28. ALBUTEROL SULFATE [Concomitant]
     Active Substance: ALBUTEROL SULFATE

REACTIONS (5)
  - Hospitalisation [Unknown]
  - Cerebrovascular disorder [None]
  - Syncope [None]
  - Dizziness [None]
  - Blood pressure decreased [None]
